FAERS Safety Report 8807852 (Version 1)
Quarter: 2012Q4

REPORT INFORMATION
  Report Type: 
  Country: GB (occurrence: GB)
  Receive Date: 20120925
  Receipt Date: 20120925
  Transmission Date: 20130627
  Serious: Yes (Other)
  Sender: FDA-Public Use
  Company Number: GB-GLAXOSMITHKLINE-B0830896A

PATIENT
  Age: 15 Year
  Sex: Female

DRUGS (4)
  1. LAMOTRIGINE [Suspect]
     Indication: BIPOLAR DISORDER
  2. CETIRIZINE [Suspect]
     Indication: SEASONAL ALLERGY
     Route: 048
  3. ABILIFY [Suspect]
     Indication: BIPOLAR DISORDER
  4. ETONOGESTREL [Suspect]
     Indication: CONTRACEPTION

REACTIONS (2)
  - Abortion spontaneous [Unknown]
  - Exposure during pregnancy [Unknown]
